FAERS Safety Report 10047391 (Version 1)
Quarter: 2014Q1

REPORT INFORMATION
  Report Type: Spontaneous
  Country: US (occurrence: US)
  Receive Date: 20140331
  Receipt Date: 20140331
  Transmission Date: 20141002
  Serious: Yes (Death)
  Sender: FDA-Public Use
  Company Number: US-SA-2014SA035404

PATIENT
  Age: 67 Year
  Sex: Male

DRUGS (2)
  1. LANTUS SOLOSTAR [Suspect]
     Indication: PRODUCT USED FOR UNKNOWN INDICATION
     Dosage: 70 UNITS IN MORNING AND 40 UNITS IN EVENIING DOSE:110 UNIT(S)
     Route: 065
  2. SOLOSTAR [Concomitant]

REACTIONS (1)
  - Cardiac arrest [Fatal]
